FAERS Safety Report 8448848-0 (Version None)
Quarter: 2012Q2

REPORT INFORMATION
  Report Type: 
  Country: None (occurrence: None)
  Receive Date: 20120619
  Receipt Date: 20120514
  Transmission Date: 20120825
  Serious: No
  Sender: FDA-Public Use
  Company Number: US-ASTRAZENECA-2012SE30830

PATIENT
  Age: 64 Year
  Sex: Female
  Weight: 79.4 kg

DRUGS (1)
  1. NEXIUM [Suspect]
     Indication: GASTROOESOPHAGEAL REFLUX DISEASE
     Dosage: UNKNOWN DOSE EVERY OTHER DAY
     Route: 048

REACTIONS (2)
  - OFF LABEL USE [None]
  - BLOOD CHOLESTEROL INCREASED [None]
